FAERS Safety Report 7056652-3 (Version None)
Quarter: 2010Q4

REPORT INFORMATION
  Report Type: 
  Country: None (occurrence: None)
  Receive Date: 20101019
  Receipt Date: 20101015
  Transmission Date: 20110411
  Serious: Yes (Disabling, Other)
  Sender: FDA-Public Use
  Company Number: CL-254-2010

PATIENT
  Age: 79 Year
  Sex: Female
  Weight: 49 kg

DRUGS (4)
  1. FLAGYL [Suspect]
     Indication: VAGINAL DISCHARGE
     Dosage: 400MG BD ORAL USE
     Route: 048
     Dates: start: 20100302, end: 20100309
  2. CORTICOSTEROID NOS [Concomitant]
  3. EVOREL [Concomitant]
  4. LANSOPRAZOLE [Concomitant]

REACTIONS (11)
  - ERYTHEMA [None]
  - FATIGUE [None]
  - HEADACHE [None]
  - HYPERSENSITIVITY [None]
  - INFECTION [None]
  - MALAISE [None]
  - OEDEMA PERIPHERAL [None]
  - PRURITUS [None]
  - QUALITY OF LIFE DECREASED [None]
  - RASH [None]
  - RASH ERYTHEMATOUS [None]
